FAERS Safety Report 9026105 (Version 2)
Quarter: 2013Q1

REPORT INFORMATION
  Report Type: Spontaneous
  Country: DE (occurrence: None)
  Receive Date: 20130107
  Receipt Date: 20130122
  Transmission Date: 20140127
  Serious: Yes (Death, Hospitalization)
  Sender: FDA-Public Use
  Company Number: DE-1195915

PATIENT
  Age: 23 Year
  Sex: Female

DRUGS (2)
  1. CILOXAN [Suspect]
  2. TIGECYCLINE [Suspect]

REACTIONS (2)
  - Coma hepatic [None]
  - Multi-organ failure [None]
